FAERS Safety Report 5341884-2 (Version None)
Quarter: 2007Q2

REPORT INFORMATION
  Report Type: 
  Country: None (occurrence: None)
  Receive Date: 20070601
  Receipt Date: 20070522
  Transmission Date: 20071010
  Serious: Yes (Hospitalization)
  Sender: FDA-Public Use
  Company Number: FR-ELI_LILLY_AND_COMPANY-FR200703003674

PATIENT
  Age: 79 Year
  Sex: Female
  Weight: 78 kg

DRUGS (9)
  1. FORTEO [Suspect]
     Indication: OSTEOPOROSIS
     Dosage: 20 UG, DAILY (1/D)
     Route: 058
     Dates: start: 20060713, end: 20070110
  2. LASIX [Concomitant]
     Indication: HYPERTENSION
     Dosage: 0.5 D/F, DAILY (1/D)
     Route: 048
  3. LOXEN [Concomitant]
     Indication: HYPERTENSION
     Dosage: 1 D/F, DAILY (1/D)
     Route: 048
  4. TENORMIN [Concomitant]
     Indication: HYPERTENSION
     Dosage: 0.5 D/F, 2/D
     Route: 048
  5. TENORMIN [Concomitant]
     Dosage: UNK, 2/D
     Route: 048
  6. KARDEGIC [Concomitant]
     Indication: MYOCARDIAL INFARCTION
     Dosage: 1 D/F, DAILY (1/D)
     Route: 048
  7. PLAVIX [Concomitant]
     Indication: MYOCARDIAL INFARCTION
     Dosage: 1 D/F, DAILY (1/D)
     Route: 048
  8. LESCOL [Concomitant]
     Indication: HYPERCHOLESTEROLAEMIA
     Dosage: 1 D/F, DAILY (1/D)
     Route: 048
  9. DIFFU K [Concomitant]
     Indication: HYPOKALAEMIA
     Dosage: 1 D/F, DAILY (1/D)
     Route: 048

REACTIONS (1)
  - MYOCARDIAL INFARCTION [None]
